FAERS Safety Report 6315894-2 (Version None)
Quarter: 2009Q3

REPORT INFORMATION
  Report Type: 
  Country: None (occurrence: None)
  Receive Date: 20090820
  Receipt Date: 20090813
  Transmission Date: 20100115
  Serious: Yes (Death, Hospitalization)
  Sender: FDA-Public Use
  Company Number: US-ELI_LILLY_AND_COMPANY-US200908001242

PATIENT
  Sex: Female

DRUGS (10)
  1. BYETTA [Suspect]
     Indication: TYPE 2 DIABETES MELLITUS
     Dosage: 5 UG, 2/D
     Route: 058
  2. BYETTA [Suspect]
     Dosage: 5 UG, EACH MORNING
     Route: 058
  3. BYETTA [Suspect]
     Dosage: 10 UG, EACH EVENING
     Route: 058
  4. BYETTA [Suspect]
     Dosage: 10 UG, 2/D
     Route: 058
     Dates: end: 20090727
  5. METFORMIN [Concomitant]
     Indication: TYPE 2 DIABETES MELLITUS
     Dosage: 500 MG, 2/D
     Route: 048
  6. GABAPENTIN [Concomitant]
     Dosage: 300 MG, 2/D
     Route: 048
  7. AMLODIPINE BESYLATE AND BENAZEPRIL HCL [Concomitant]
     Dosage: UNK, DAILY (1/D)
     Route: 048
  8. CRESTOR [Concomitant]
     Indication: BLOOD CHOLESTEROL
     Dosage: 10 UG, DAILY (1/D)
     Route: 048
  9. GLIMEPIRIDE [Concomitant]
     Indication: TYPE 2 DIABETES MELLITUS
     Dosage: 4 MG, 2/D
     Route: 048
  10. ACIPHEX [Concomitant]
     Indication: DYSPEPSIA
     Dosage: 20 MG, DAILY (1/D)
     Route: 048

REACTIONS (5)
  - CEREBRAL HAEMATOMA [None]
  - CONTRAST MEDIA REACTION [None]
  - CYSTITIS [None]
  - HEPATIC ENZYME INCREASED [None]
  - RASH GENERALISED [None]
